FAERS Safety Report 8270219 (Version 7)
Quarter: 2013Q1

REPORT INFORMATION
  Report Type: Report from Study
  Country: DE (occurrence: DE)
  Receive Date: 20111201
  Receipt Date: 20130315
  Transmission Date: 20140127
  Serious: Yes (Death, Hospitalization, Disabling, Other)
  Sender: FDA-Public Use
  Company Number: PHHY2011DE66944

PATIENT
  Age: 71 Year
  Sex: Male
  Weight: 60 kg

DRUGS (18)
  1. AMN107 [Suspect]
     Indication: CHRONIC MYELOID LEUKAEMIA
     Dosage: 400 MG, BID
     Route: 048
     Dates: start: 20110120, end: 20110429
  2. AMN107 [Suspect]
     Dosage: 200 MG, BID
     Route: 048
     Dates: start: 20110505, end: 20110506
  3. AMN107 [Suspect]
     Dosage: 200 MG, TID
     Route: 048
     Dates: start: 20110519, end: 20111024
  4. BERLTHYROX [Concomitant]
     Dates: start: 20041109
  5. ALLOPURINOL [Concomitant]
     Dates: start: 20041109, end: 20110505
  6. SIMVASTATIN [Concomitant]
     Dosage: 20 MG
     Dates: start: 20110406, end: 20110505
  7. SIMVASTATIN [Concomitant]
     Dosage: 20 MG
     Dates: start: 20110826
  8. METOPROLOL [Concomitant]
     Indication: HYPERTENSION
     Dosage: 1 DF
     Route: 048
     Dates: start: 20110722
  9. PENTALONG 50 [Concomitant]
     Dates: start: 20110713
  10. ASS [Concomitant]
     Dates: start: 20110316
  11. BENALAPRIL [Concomitant]
     Dates: start: 20041109
  12. LACTULOSE [Concomitant]
     Dates: start: 20110413
  13. NEO RECORMON [Concomitant]
     Dates: start: 20080220, end: 20110316
  14. PLAVIX [Concomitant]
     Dates: start: 20110906, end: 20110920
  15. ENALAPRIL [Concomitant]
     Dates: start: 20110831
  16. CLOPIDOGREL [Concomitant]
     Dosage: 75 MG
     Dates: start: 20110826, end: 20110926
  17. L-THYROXIN [Concomitant]
     Dates: start: 20110831
  18. ALPROSTADIL [Concomitant]
     Dates: start: 20110826, end: 20110830

REACTIONS (31)
  - Apallic syndrome [Fatal]
  - Nervous system disorder [Fatal]
  - Pneumonia [Fatal]
  - Acute coronary syndrome [Recovered/Resolved]
  - Ventricular fibrillation [Not Recovered/Not Resolved]
  - Mental disorder due to a general medical condition [Not Recovered/Not Resolved]
  - Brain injury [Unknown]
  - Supraventricular tachycardia [Recovered/Resolved]
  - Myocardial infarction [Not Recovered/Not Resolved]
  - Pain in extremity [Recovered/Resolved]
  - Fall [Not Recovered/Not Resolved]
  - Haemorrhage intracranial [Not Recovered/Not Resolved]
  - Sinoatrial block [Not Recovered/Not Resolved]
  - Anaphylactic reaction [Recovered/Resolved]
  - Lip swelling [Recovered/Resolved]
  - Swelling face [Recovered/Resolved]
  - C-reactive protein increased [Unknown]
  - Coronary artery disease [Not Recovered/Not Resolved]
  - Sensation of heaviness [Not Recovered/Not Resolved]
  - Hepatic enzyme increased [Not Recovered/Not Resolved]
  - Headache [Recovered/Resolved]
  - Muscle spasms [Recovered/Resolved]
  - Chills [Recovered/Resolved]
  - Paraesthesia [Recovered/Resolved]
  - Peripheral arterial occlusive disease [Recovered/Resolved]
  - Chest pain [Not Recovered/Not Resolved]
  - Cardiovascular disorder [Not Recovered/Not Resolved]
  - Sedation [Unknown]
  - Pharyngitis [Recovered/Resolved]
  - Chest discomfort [Not Recovered/Not Resolved]
  - Dyspnoea [Not Recovered/Not Resolved]
